FAERS Safety Report 9850524 (Version 1)
Quarter: 2014Q1

REPORT INFORMATION
  Report Type: Spontaneous
  Country: FR (occurrence: FR)
  Receive Date: 20140128
  Receipt Date: 20140128
  Transmission Date: 20141002
  Serious: Yes (Hospitalization)
  Sender: FDA-Public Use
  Company Number: FR-TEVA-456984ISR

PATIENT
  Age: 54 Year
  Sex: Male

DRUGS (12)
  1. OXALIPLATINE TEVA [Suspect]
     Indication: RECTAL CANCER METASTATIC
     Route: 042
     Dates: start: 20130605, end: 20131004
  2. TRANDOLAPRIL [Concomitant]
  3. CORGARD 80MG [Concomitant]
  4. SPIRONOLACTONE [Concomitant]
  5. ALTIZIDE [Concomitant]
  6. INEGY [Concomitant]
  7. KOMBOGLYZE [Concomitant]
  8. LEXOMIL ROCHE [Concomitant]
  9. SMECTA [Concomitant]
  10. IRINOTECAN [Concomitant]
     Indication: RECTAL CANCER METASTATIC
  11. LEVOFOLINATE CALCIQUE [Concomitant]
     Indication: RECTAL CANCER METASTATIC
  12. 5-FLUOROURACILE [Concomitant]
     Indication: RECTAL CANCER METASTATIC

REACTIONS (4)
  - Oxygen saturation decreased [Recovered/Resolved]
  - Circulatory collapse [Recovered/Resolved]
  - Hyperhidrosis [Recovered/Resolved]
  - Suffocation feeling [Recovered/Resolved]
